FAERS Safety Report 8571504-5 (Version None)
Quarter: 2012Q3

REPORT INFORMATION
  Report Type: 
  Country: None (occurrence: None)
  Receive Date: 20120806
  Receipt Date: 20120726
  Transmission Date: 20120928
  Serious: Yes (Hospitalization, Other)
  Sender: FDA-Public Use
  Company Number: US-JNJFOC-20120800491

PATIENT
  Sex: Female
  Weight: 36.29 kg

DRUGS (2)
  1. METHOTREXATE [Concomitant]
     Route: 065
  2. REMICADE [Suspect]
     Indication: RHEUMATOID ARTHRITIS
     Route: 042
     Dates: end: 20120701

REACTIONS (3)
  - BLINDNESS UNILATERAL [None]
  - DEMENTIA ALZHEIMER'S TYPE [None]
  - HERPES OPHTHALMIC [None]
